FAERS Safety Report 22090242 (Version 1)
Quarter: 2023Q1

REPORT INFORMATION
  Report Type: Spontaneous
  Country: US (occurrence: US)
  Receive Date: 20230313
  Receipt Date: 20230313
  Transmission Date: 20230417
  Serious: No
  Sender: FDA-Public Use
  Company Number: US-002147023-NVSC2023US057143

PATIENT
  Sex: Male
  Weight: 81.19 kg

DRUGS (2)
  1. AFINITOR [Suspect]
     Active Substance: EVEROLIMUS
     Indication: Product used for unknown indication
     Dosage: UNK
     Route: 065
  2. LENVIMA [Suspect]
     Active Substance: LENVATINIB
     Indication: Renal cancer
     Dosage: 18 MG, QD, 1-10 MG/ 2-4 MG) 5 DAYS
     Route: 048
     Dates: start: 20230105

REACTIONS (3)
  - Dry skin [Unknown]
  - Rash pruritic [Unknown]
  - Urticaria [Unknown]
